FAERS Safety Report 5022904-1 (Version None)
Quarter: 2006Q2

REPORT INFORMATION
  Report Type: 
  Country: None (occurrence: None)
  Receive Date: 20060426
  Receipt Date: 20060324
  Transmission Date: 20061013
  Serious: Yes (Other)
  Sender: FDA-Public Use
  Company Number: 2006042446

PATIENT
  Age: 29 Year
  Sex: Female
  Weight: 94.3482 kg

DRUGS (3)
  1. LYRICA [Suspect]
     Indication: FIBROMYALGIA
     Dosage: 150 MG (50 MG,3 IN 1 D)
     Dates: start: 20060301, end: 20060324
  2. VICODIN [Concomitant]
  3. FLEXERIL [Concomitant]

REACTIONS (2)
  - CHEST PAIN [None]
  - FEELING ABNORMAL [None]
